FAERS Safety Report 24131781 (Version 1)
Quarter: 2024Q3

REPORT INFORMATION
  Report Type: Spontaneous
  Country: US (occurrence: US)
  Receive Date: 20240724
  Receipt Date: 20240724
  Transmission Date: 20241017
  Serious: No
  Sender: RANBAXY
  Company Number: US-SUN PHARMACEUTICAL INDUSTRIES LTD-2023R1-395748

PATIENT
  Sex: Male

DRUGS (1)
  1. DILTIAZEM [Suspect]
     Active Substance: DILTIAZEM
     Indication: Product used for unknown indication
     Dosage: UNK
     Route: 065

REACTIONS (8)
  - Dry mouth [Unknown]
  - Dental plaque [Unknown]
  - Product after taste [Unknown]
  - Tongue coated [Unknown]
  - Breath odour [Unknown]
  - Hunger [Unknown]
  - Product substitution issue [Unknown]
  - Product quality issue [Unknown]
